FAERS Safety Report 12634865 (Version 1)
Quarter: 2016Q3

REPORT INFORMATION
  Report Type: Spontaneous
  Country: BR (occurrence: BR)
  Receive Date: 20160808
  Receipt Date: 20160808
  Transmission Date: 20161109
  Serious: Yes (Other)
  Sender: FDA-Public Use
  Company Number: BR-IGI LABORATORIES, INC.-1055958

PATIENT
  Age: 77 Year
  Sex: Female

DRUGS (19)
  1. TRAMAL [Suspect]
     Active Substance: TRAMADOL
     Route: 048
  2. PARACETAMOL [Suspect]
     Active Substance: ACETAMINOPHEN
     Route: 065
  3. ENOXAPARIN SODIUM. [Suspect]
     Active Substance: ENOXAPARIN SODIUM
     Route: 065
  4. LOSARTAN. [Suspect]
     Active Substance: LOSARTAN
     Route: 065
  5. MORPHINE SULFATE. [Suspect]
     Active Substance: MORPHINE SULFATE
     Route: 065
  6. VENLAFAXINE [Suspect]
     Active Substance: VENLAFAXINE HYDROCHLORIDE
     Route: 065
  7. OMEPRAZOLE. [Suspect]
     Active Substance: OMEPRAZOLE
     Route: 065
  8. ENALAPRIL [Suspect]
     Active Substance: ENALAPRIL
     Route: 065
  9. PROPAFENONE. [Suspect]
     Active Substance: PROPAFENONE
     Route: 065
  10. FUROSEMIDE. [Suspect]
     Active Substance: FUROSEMIDE
     Route: 065
  11. OXYCODONE HYDROCHLORIDE. [Suspect]
     Active Substance: OXYCODONE HYDROCHLORIDE
     Route: 065
  12. BISACODYL. [Suspect]
     Active Substance: BISACODYL
     Route: 065
  13. BROMOPRIDE [Suspect]
     Active Substance: BROMOPRIDE
     Route: 065
  14. HYDROCHLOROTHIAZIDE. [Suspect]
     Active Substance: HYDROCHLOROTHIAZIDE
     Route: 065
  15. LORATADINE. [Suspect]
     Active Substance: LORATADINE
     Route: 065
  16. ZINACEF [Suspect]
     Active Substance: CEFUROXIME SODIUM
     Indication: PRODUCT USED FOR UNKNOWN INDICATION
     Route: 065
     Dates: start: 20160502, end: 20160505
  17. CEFTAZIDIME. [Suspect]
     Active Substance: CEFTAZIDIME
     Route: 065
     Dates: start: 20160505, end: 20160519
  18. POTASSIUM CHLORIDE. [Suspect]
     Active Substance: POTASSIUM CHLORIDE
     Route: 065
  19. ACETYLCYSTEINE. [Suspect]
     Active Substance: ACETYLCYSTEINE
     Route: 065

REACTIONS (4)
  - Chest pain [Recovered/Resolved]
  - Choking sensation [Recovered/Resolved]
  - Malaise [Recovered/Resolved]
  - Swelling [Recovered/Resolved]

NARRATIVE: CASE EVENT DATE: 20160505
